FAERS Safety Report 6844261-8 (Version None)
Quarter: 2010Q3

REPORT INFORMATION
  Report Type: 
  Country: None (occurrence: None)
  Receive Date: 20100715
  Receipt Date: 20100712
  Transmission Date: 20110219
  Serious: Yes (Hospitalization)
  Sender: FDA-Public Use
  Company Number: DE-SANOFI-AVENTIS-2010SA040186

PATIENT
  Sex: Female

DRUGS (2)
  1. ARAVA [Suspect]
     Indication: PRODUCT USED FOR UNKNOWN INDICATION
     Route: 048
     Dates: start: 20090101, end: 20091001
  2. ARAVA [Suspect]
     Route: 048
     Dates: start: 20091001, end: 20100301

REACTIONS (1)
  - HYPERTENSIVE CRISIS [None]
